FAERS Safety Report 8773415 (Version 2)
Quarter: 2012Q4

REPORT INFORMATION
  Report Type: 
  Country: US (occurrence: US)
  Receive Date: 20120907
  Receipt Date: 20121001
  Transmission Date: 20130627
  Serious: Yes (Death)
  Sender: FDA-Public Use
  Company Number: US-CELGENEUS-163-21880-12090338

PATIENT
  Age: 74 Year
  Sex: Male

DRUGS (4)
  1. REVLIMID [Suspect]
     Indication: NON-HODGKIN^S LYMPHOMA
     Dosage: 18.75 Milligram
     Route: 048
     Dates: start: 201207
  2. REVLIMID [Suspect]
     Dosage: 18.75 Milligram
     Route: 048
     Dates: start: 20120808, end: 2012
  3. PRAVASTATIN [Concomitant]
     Indication: HYPERCHOLESTEROLEMIA
     Dosage: 40 Milligram
     Route: 048
  4. METOPROLOL [Concomitant]
     Indication: HYPERTENSION
     Dosage: 25 Milligram
     Route: 048

REACTIONS (1)
  - Non-Hodgkin^s lymphoma [Fatal]
